FAERS Safety Report 8097344-1 (Version None)
Quarter: 2012Q1

REPORT INFORMATION
  Report Type: 
  Country: None (occurrence: None)
  Receive Date: 20120128
  Receipt Date: 20110716
  Transmission Date: 20120608
  Serious: No
  Sender: FDA-Public Use
  Company Number: US-ABBOTT-11P-163-0839573-00

PATIENT
  Age: 64 Year
  Sex: Female

DRUGS (9)
  1. AMYTRIPTYLINE [Concomitant]
     Indication: PRODUCT USED FOR UNKNOWN INDICATION
  2. HUMIRA [Suspect]
     Indication: PSORIATIC ARTHROPATHY
     Dates: start: 20110713
  3. NABUMETONE [Concomitant]
     Indication: ARTHRITIS
  4. LISINOPRIL [Concomitant]
     Indication: BLOOD PRESSURE
  5. FOLIC ACID [Concomitant]
     Indication: PRODUCT USED FOR UNKNOWN INDICATION
  6. METHOTREXATE [Concomitant]
     Indication: PAIN
  7. TRAMADOL HCL [Concomitant]
     Indication: PAIN
  8. HYDROCODONE BITARTRATE [Concomitant]
     Indication: PAIN
  9. ATIVAN [Concomitant]
     Indication: PRODUCT USED FOR UNKNOWN INDICATION

REACTIONS (3)
  - COUGH [None]
  - ASTHENIA [None]
  - HEADACHE [None]
